FAERS Safety Report 24674227 (Version 1)
Quarter: 2024Q4

REPORT INFORMATION
  Report Type: Spontaneous
  Country: PR (occurrence: PR)
  Receive Date: 20241128
  Receipt Date: 20241128
  Transmission Date: 20250115
  Serious: Yes (Hospitalization)
  Sender: STRIDES
  Company Number: PR-STRIDES ARCOLAB LIMITED-2024SP015544

PATIENT
  Age: 30 Year
  Sex: Female

DRUGS (4)
  1. POTASSIUM CITRATE [Suspect]
     Active Substance: POTASSIUM CITRATE
     Indication: Hypokalaemia
     Dosage: UNK
     Route: 065
  2. DESMOPRESSIN [Suspect]
     Active Substance: DESMOPRESSIN
     Indication: Hypernatraemia
     Dosage: 4 MICROGRAM, SINGLE
     Route: 042
  3. DESMOPRESSIN [Suspect]
     Active Substance: DESMOPRESSIN
     Dosage: 10 MICROGRAM, EVERY 8 HOURS
     Route: 045
  4. DESMOPRESSIN [Suspect]
     Active Substance: DESMOPRESSIN
     Dosage: UNK (FREQUENCY DECREASED)
     Route: 045

REACTIONS (4)
  - Pulmonary congestion [Unknown]
  - Dyspnoea [Unknown]
  - Maternal exposure during pregnancy [Unknown]
  - Off label use [Unknown]
